FAERS Safety Report 7386225-4 (Version None)
Quarter: 2011Q1

REPORT INFORMATION
  Report Type: 
  Country: None (occurrence: None)
  Receive Date: 20110329
  Receipt Date: 20110329
  Transmission Date: 20110831
  Serious: Yes (Other)
  Sender: FDA-Public Use
  Company Number: None

PATIENT
  Sex: Male

DRUGS (1)
  1. NORVIR [Suspect]
     Indication: HIV INFECTION
     Dosage: 100 MG ONCE DAILY PO
     Route: 048
     Dates: start: 20110223, end: 20110324

REACTIONS (4)
  - CHEST PAIN [None]
  - MOUTH ULCERATION [None]
  - PRODUCT FORMULATION ISSUE [None]
  - DIZZINESS [None]
